FAERS Safety Report 4385659-X (Version None)
Quarter: 2004Q2

REPORT INFORMATION
  Report Type: 
  Country: None (occurrence: None)
  Receive Date: 20040624
  Receipt Date: 20040616
  Transmission Date: 20050107
  Serious: No
  Sender: FDA-Public Use
  Company Number: 2004UW07370

PATIENT
  Age: 69 Year
  Sex: Female
  Weight: 71.2147 kg

DRUGS (4)
  1. CRESTOR [Suspect]
     Indication: BLOOD CHOLESTEROL INCREASED
     Dosage: 10 MG PO
     Route: 048
     Dates: start: 20040210, end: 20040315
  2. TEQUIN [Suspect]
     Indication: UPPER RESPIRATORY TRACT INFECTION
     Dosage: 400 MG
     Dates: start: 20040309, end: 20040315
  3. ASPIRIN [Concomitant]
  4. MULTI-VITAMINS [Concomitant]

REACTIONS (5)
  - APHONIA [None]
  - BLISTER [None]
  - EYE HAEMORRHAGE [None]
  - PHARYNGOLARYNGEAL PAIN [None]
  - RASH GENERALISED [None]
